FAERS Safety Report 5488426-9 (Version None)
Quarter: 2007Q3

REPORT INFORMATION
  Report Type: 
  Country: None (occurrence: None)
  Receive Date: 20070927
  Receipt Date: 20070720
  Transmission Date: 20080115
  Serious: No
  Sender: FDA-Public Use
  Company Number: US-CVT-070138

PATIENT
  Age: 75 Year
  Sex: Male

DRUGS (5)
  1. RANEXA [Suspect]
     Indication: ANGINA PECTORIS
     Dosage: 500 MG, BID, ORAL
     Route: 048
     Dates: start: 20070620, end: 20070719
  2. DILTIAZEM000489701/ (DILTIAZEM) [Concomitant]
  3. NITROGLYCERIN (GLYCERYL TRINITRATE) TRANSDERMAL PATCH [Concomitant]
  4. NIACIN [Concomitant]
  5. DOXAZOSIN/(00639301/ (DOXAZOSIN) [Concomitant]

REACTIONS (4)
  - ABNORMAL DREAMS [None]
  - BALANCE DISORDER [None]
  - DIZZINESS [None]
  - HALLUCINATION [None]
